FAERS Safety Report 4686026-1 (Version None)
Quarter: 2005Q2

REPORT INFORMATION
  Report Type: 
  Country: None (occurrence: None)
  Receive Date: 20050609
  Receipt Date: 20050531
  Transmission Date: 20051028
  Serious: Yes (Hospitalization)
  Sender: FDA-Public Use
  Company Number: FI-NOVOPROD-244558

PATIENT
  Sex: Male

DRUGS (4)
  1. NOVOLOG MIX 70/30 [Suspect]
     Indication: ILL-DEFINED DISORDER
  2. NOVOLOG MIX 70/30 [Suspect]
  3. PROTAPHANE FLEXPEN [Suspect]
     Indication: ILL-DEFINED DISORDER
  4. PROTAPHANE FLEXPEN [Suspect]

REACTIONS (2)
  - BLOOD GLUCOSE INCREASED [None]
  - FATIGUE [None]
